FAERS Safety Report 8377763-6 (Version None)
Quarter: 2012Q2

REPORT INFORMATION
  Report Type: 
  Country: None (occurrence: None)
  Receive Date: 20120522
  Receipt Date: 20120514
  Transmission Date: 20120825
  Serious: Yes (Death)
  Sender: FDA-Public Use
  Company Number: DE-UCBSA-057379

PATIENT
  Sex: Male

DRUGS (9)
  1. CITALOPRAM HYDROBROMIDE [Concomitant]
     Indication: DEPRESSION
     Route: 048
     Dates: start: 20070101, end: 20120301
  2. MIRTAZAPINE [Concomitant]
     Indication: DEPRESSION
     Route: 048
     Dates: start: 20070101, end: 20120301
  3. METFORMIN HCL [Concomitant]
     Indication: TYPE 2 DIABETES MELLITUS
     Route: 048
     Dates: start: 20090101, end: 20120301
  4. PREDNISOLONE AS CORTISONE PULSE [Concomitant]
     Indication: POLYARTHRITIS
     Route: 048
     Dates: start: 20000101, end: 20120301
  5. FOLIC ACID [Concomitant]
     Indication: POLYARTHRITIS
     Route: 048
     Dates: start: 20030101, end: 20120301
  6. METHOTREXATE SODIUM [Concomitant]
     Indication: POLYARTHRITIS
     Route: 058
     Dates: start: 20030101, end: 20120301
  7. CIMZIA [Suspect]
     Dosage: NO OF DOSES-2
     Route: 058
     Dates: start: 20110930, end: 20111001
  8. MORPHINE [Concomitant]
     Indication: POLYARTHRITIS
     Route: 048
     Dates: start: 20090101, end: 20120301
  9. OMEPRAZOLE [Concomitant]
     Indication: PROPHYLAXIS
     Route: 048
     Dates: start: 20080101, end: 20120301

REACTIONS (1)
  - BRONCHIAL CARCINOMA [None]
